FAERS Safety Report 6326102-0 (Version None)
Quarter: 2009Q3

REPORT INFORMATION
  Report Type: 
  Country: None (occurrence: None)
  Receive Date: 20090824
  Receipt Date: 20090813
  Transmission Date: 20100115
  Serious: Yes (Hospitalization)
  Sender: FDA-Public Use
  Company Number: FR-SANOFI-SYNTHELABO-A02200902144

PATIENT
  Sex: Male

DRUGS (7)
  1. ASPIRIN [Concomitant]
     Dosage: UNK
     Route: 065
  2. METHOTREXATE [Concomitant]
     Dosage: UNK
     Route: 065
  3. ENALAPRIL MALEATE [Concomitant]
     Dosage: UNK
     Route: 048
  4. FUROSEMIDE [Concomitant]
     Dosage: UNK
     Route: 065
  5. PROTELOS [Concomitant]
     Dosage: UNK
     Route: 048
  6. CORTANCYL [Concomitant]
     Dosage: UNK
     Route: 048
  7. PLAVIX [Suspect]
     Indication: ISCHAEMIC STROKE
     Dosage: UNK
     Route: 048
     Dates: start: 20090501, end: 20090713

REACTIONS (1)
  - ANTI FACTOR VIII ANTIBODY TEST [None]
